FAERS Safety Report 20780059 (Version 1)
Quarter: 2022Q2

REPORT INFORMATION
  Report Type: Spontaneous
  Country: US (occurrence: None)
  Receive Date: 20220503
  Receipt Date: 20220503
  Transmission Date: 20220721
  Serious: No
  Sender: FDA-Public Use
  Company Number: 2022A167775

PATIENT
  Sex: Male

DRUGS (1)
  1. OMEPRAZOLE [Suspect]
     Active Substance: OMEPRAZOLE
     Dosage: UNKNOWN POSOLOGY
     Route: 048

REACTIONS (3)
  - Dysphagia [Unknown]
  - Weight decreased [Unknown]
  - Wrong technique in product usage process [Unknown]
